FAERS Safety Report 5495194-3 (Version None)
Quarter: 2007Q4

REPORT INFORMATION
  Report Type: 
  Country: None (occurrence: None)
  Receive Date: 20071024
  Receipt Date: 20070906
  Transmission Date: 20080405
  Serious: No
  Sender: FDA-Public Use
  Company Number: US-AMGEN-US242066

PATIENT
  Sex: Female

DRUGS (1)
  1. VECTIBIX [Suspect]
     Indication: COLORECTAL CANCER
     Dates: start: 20070705

REACTIONS (5)
  - EPHELIDES [None]
  - RASH [None]
  - SCAR [None]
  - SKIN SWELLING [None]
  - SUNBURN [None]
